FAERS Safety Report 8339582 (Version 2)
Quarter: 2014Q1

REPORT INFORMATION
  Report Type: Spontaneous
  Country: GB (occurrence: GB)
  Receive Date: 20120117
  Receipt Date: 20140213
  Transmission Date: 20141002
  Serious: Yes (Other)
  Sender: FDA-Public Use
  Company Number: GB-US-EMD SERONO, INC.-7106170

PATIENT
  Age: 65 Year
  Sex: Female

DRUGS (2)
  1. REBIF [Suspect]
     Indication: RELAPSING-REMITTING MULTIPLE SCLEROSIS
     Route: 058
     Dates: end: 201112
  2. REBIF [Suspect]
     Dates: end: 201312

REACTIONS (3)
  - Atypical pneumonia [Recovered/Resolved]
  - Aortic valve incompetence [Unknown]
  - Nasopharyngitis [Recovered/Resolved]
